FAERS Safety Report 20331646 (Version 1)
Quarter: 2022Q1

REPORT INFORMATION
  Report Type: Spontaneous
  Country: BR (occurrence: BR)
  Receive Date: 20220113
  Receipt Date: 20220113
  Transmission Date: 20220424
  Serious: Yes (Other)
  Sender: FDA-Public Use
  Company Number: BR-009507513-2201BRA001799

PATIENT
  Sex: Male
  Weight: 70.5 kg

DRUGS (1)
  1. KEYTRUDA [Suspect]
     Active Substance: PEMBROLIZUMAB
     Dosage: 200MG EVERY 21 DAYS
     Dates: start: 20210916

REACTIONS (5)
  - Immune-mediated lung disease [Unknown]
  - Asthmatic crisis [Recovering/Resolving]
  - Lymphadenopathy mediastinal [Recovered/Resolved]
  - Inflammation [Unknown]
  - Lower respiratory tract infection [Unknown]

NARRATIVE: CASE EVENT DATE: 20210101
